FAERS Safety Report 20836189 (Version 1)
Quarter: 2022Q2

REPORT INFORMATION
  Report Type: Report from Study
  Country: US (occurrence: US)
  Receive Date: 20220516
  Receipt Date: 20220516
  Transmission Date: 20220721
  Serious: Yes (Other)
  Sender: FDA-Public Use
  Company Number: US-BRISTOL-MYERS SQUIBB COMPANY-2022-033498

PATIENT
  Age: 43 Year
  Sex: Female
  Weight: 83.914 kg

DRUGS (1)
  1. ZEPOSIA [Suspect]
     Active Substance: OZANIMOD HYDROCHLORIDE
     Indication: Colitis ulcerative
     Route: 048
     Dates: start: 20220425

REACTIONS (4)
  - Fatigue [Unknown]
  - Nausea [Unknown]
  - Haemorrhage [Unknown]
  - Gastrointestinal motility disorder [Unknown]
